FAERS Safety Report 24820105 (Version 2)
Quarter: 2025Q1

REPORT INFORMATION
  Report Type: Spontaneous
  Country: US (occurrence: US)
  Receive Date: 20250108
  Receipt Date: 20250116
  Transmission Date: 20250408
  Serious: Yes (Hospitalization, Other)
  Sender: AMGEN
  Company Number: US-AMGEN-USASP2025000417

PATIENT
  Age: 77 Year
  Sex: Female
  Weight: 66.213 kg

DRUGS (3)
  1. REPATHA [Suspect]
     Active Substance: EVOLOCUMAB
     Indication: Arteriosclerosis
     Dosage: 140 MILLIGRAM PER MILLILITRE, Q2WK
     Route: 058
     Dates: start: 2024
  2. REPATHA [Suspect]
     Active Substance: EVOLOCUMAB
     Indication: Blood cholesterol increased
  3. PREDNISONE [Suspect]
     Active Substance: PREDNISONE
     Indication: Product used for unknown indication
     Route: 065

REACTIONS (13)
  - Gallbladder disorder [Recovering/Resolving]
  - Oxygen saturation decreased [Recovering/Resolving]
  - Bladder hypertrophy [Not Recovered/Not Resolved]
  - Bell^s palsy [Recovering/Resolving]
  - Fall [Unknown]
  - Haematoma [Recovering/Resolving]
  - Wrong technique in product usage process [Unknown]
  - Device difficult to use [Unknown]
  - Incorrect disposal of product [Unknown]
  - Drug dose omission by device [Unknown]
  - Injection site discolouration [Recovered/Resolved]
  - Aphthous ulcer [Recovered/Resolved]
  - Drug hypersensitivity [Unknown]

NARRATIVE: CASE EVENT DATE: 20231001
